FAERS Safety Report 9602281 (Version 1)
Quarter: 2013Q4

REPORT INFORMATION
  Report Type: Report from Study
  Country: LB (occurrence: LB)
  Receive Date: 20131007
  Receipt Date: 20131007
  Transmission Date: 20140711
  Serious: Yes (Hospitalization)
  Sender: FDA-Public Use
  Company Number: LB-SA-2013SA096851

PATIENT
  Age: 68 Year
  Sex: Female

DRUGS (11)
  1. LANTUS SOLOSTAR [Suspect]
     Indication: DIABETES MELLITUS
     Dosage: DOSE:32 UNIT(S)
     Route: 058
     Dates: start: 201201
  2. HUMULIN R [Concomitant]
     Indication: DIABETES MELLITUS
     Dosage: 12UX2/D DOSE:12 UNIT(S)
     Route: 058
  3. HUMALOG [Concomitant]
     Indication: DIABETES MELLITUS
     Dosage: DOSE:12 UNIT(S)
     Route: 058
  4. CONCOR [Concomitant]
     Route: 048
  5. LOSANET [Concomitant]
     Route: 048
  6. BURINEX [Concomitant]
     Route: 048
  7. PREGABALIN [Concomitant]
     Route: 048
  8. ASPIRIN [Concomitant]
     Route: 048
  9. LIPONORM [Concomitant]
     Route: 048
  10. OROCAL [Concomitant]
     Route: 048
  11. SOLOSTAR [Concomitant]
     Route: 048

REACTIONS (4)
  - Toe amputation [Recovering/Resolving]
  - Thrombophlebitis [Recovering/Resolving]
  - Anaemia [Recovering/Resolving]
  - Pancreatic disorder [Recovering/Resolving]
